FAERS Safety Report 4766036-6 (Version None)
Quarter: 2005Q3

REPORT INFORMATION
  Report Type: 
  Country: None (occurrence: None)
  Receive Date: 20050912
  Receipt Date: 20050831
  Transmission Date: 20060218
  Serious: Yes (Life-Threatening, Hospitalization)
  Sender: FDA-Public Use
  Company Number: FR-GLAXOSMITHKLINE-B0392387B

PATIENT
  Sex: Male
  Weight: 1.6 kg

DRUGS (7)
  1. RETROVIR [Suspect]
     Indication: ANTIVIRAL PROPHYLAXIS
     Dosage: 3MGK PER DAY
     Route: 042
     Dates: start: 20050722, end: 20050729
  2. RETROVIR [Suspect]
     Dates: start: 20050722, end: 20050722
  3. TRIZIVIR [Suspect]
     Dates: end: 20050415
  4. COMBIVIR [Suspect]
     Dosage: 2TAB PER DAY
     Dates: start: 20050415, end: 20050722
  5. KALETRA [Suspect]
     Dosage: 3TAB TWICE PER DAY
     Dates: start: 20050415, end: 20050722
  6. CLAMOXYL [Concomitant]
     Dates: start: 20050401, end: 20050401
  7. BETAMETASONE [Concomitant]

REACTIONS (7)
  - ANAEMIA [None]
  - DRUG EXPOSURE DURING PREGNANCY [None]
  - FOETAL GROWTH RETARDATION [None]
  - INTESTINAL PERFORATION [None]
  - NECROTISING ENTEROCOLITIS NEONATAL [None]
  - PERITONITIS [None]
  - RESPIRATORY DISTRESS [None]
